FAERS Safety Report 17706809 (Version 3)
Quarter: 2021Q1

REPORT INFORMATION
  Report Type: Spontaneous
  Country: US (occurrence: US)
  Receive Date: 20200424
  Receipt Date: 20210129
  Transmission Date: 20210419
  Serious: Yes (Other)
  Sender: FDA-Public Use
  Company Number: US-ASTRAZENECA-2020SE53444

PATIENT
  Age: 25792 Day
  Sex: Male
  Weight: 74.8 kg

DRUGS (63)
  1. PRILOSEC OTC [Suspect]
     Active Substance: OMEPRAZOLE MAGNESIUM
     Route: 048
     Dates: start: 198910, end: 201805
  2. FERROUS SULFATE. [Concomitant]
     Active Substance: FERROUS SULFATE
     Indication: IRON DEFICIENCY
     Dates: start: 1997
  3. PEPCID [Concomitant]
     Active Substance: FAMOTIDINE
     Dates: start: 1990
  4. PEPTO?BISMOL [Concomitant]
     Active Substance: BISMUTH SUBSALICYLATE
  5. RANEXA [Concomitant]
     Active Substance: RANOLAZINE
  6. DIPHENOXYLATE [Concomitant]
     Active Substance: DIPHENOXYLATE
  7. CYCLOBENZAPRINE. [Concomitant]
     Active Substance: CYCLOBENZAPRINE
  8. METHYLPREDNISOLONE. [Concomitant]
     Active Substance: METHYLPREDNISOLONE
  9. LOPERAMIDE [Concomitant]
     Active Substance: LOPERAMIDE
  10. LISINOPRIL. [Concomitant]
     Active Substance: LISINOPRIL
     Indication: CARDIAC FAILURE
     Dates: start: 2005
  11. FINASTERIDE. [Concomitant]
     Active Substance: FINASTERIDE
  12. OXYCODONE?ACETAMINOPHEN [Concomitant]
     Active Substance: ACETAMINOPHEN\OXYCODONE HYDROCHLORIDE
  13. AVODART [Concomitant]
     Active Substance: DUTASTERIDE
  14. BACTRIM [Concomitant]
     Active Substance: SULFAMETHOXAZOLE\TRIMETHOPRIM
  15. DOXYCYCLINE. [Concomitant]
     Active Substance: DOXYCYCLINE
  16. DUREZOL [Concomitant]
     Active Substance: DIFLUPREDNATE
  17. PRILOSEC [Suspect]
     Active Substance: OMEPRAZOLE MAGNESIUM
     Indication: GASTROOESOPHAGEAL REFLUX DISEASE
     Route: 048
     Dates: start: 198910, end: 201805
  18. PROTONIX [Suspect]
     Active Substance: PANTOPRAZOLE SODIUM
     Indication: DYSPEPSIA
     Route: 065
     Dates: start: 198910, end: 201805
  19. PROTONIX [Suspect]
     Active Substance: PANTOPRAZOLE SODIUM
     Indication: GASTROOESOPHAGEAL REFLUX DISEASE
     Route: 065
     Dates: start: 201504, end: 201512
  20. TRAMADOL. [Concomitant]
     Active Substance: TRAMADOL
     Indication: PAIN
     Dates: start: 2011
  21. ALLOPURINOL. [Concomitant]
     Active Substance: ALLOPURINOL
     Indication: GOUT
     Dates: start: 1973
  22. METFORMIN [Concomitant]
     Active Substance: METFORMIN HYDROCHLORIDE
     Indication: DIABETES MELLITUS
     Dates: start: 2011
  23. VITAMIN B COMPLEX [Concomitant]
     Active Substance: CYANOCOBALAMIN\DEXPANTHENOL\NIACINAMIDE\PYRIDOXINE HYDROCHLORIDE\RIBOFLAVIN 5^-PHOSPHATE SODIUM\THIAMINE HYDROCHLORIDE\VITAMIN B COMPLEX
     Dates: start: 1997
  24. CIPROFLOXACIN. [Concomitant]
     Active Substance: CIPROFLOXACIN
  25. DIAZEPAM. [Concomitant]
     Active Substance: DIAZEPAM
  26. VIGAMOX [Concomitant]
     Active Substance: MOXIFLOXACIN HYDROCHLORIDE
  27. TERBINAFINE. [Concomitant]
     Active Substance: TERBINAFINE
  28. AMOXICILLIN. [Concomitant]
     Active Substance: AMOXICILLIN
  29. FUROSEMIDE. [Concomitant]
     Active Substance: FUROSEMIDE
  30. PROMETHAZINE [Concomitant]
     Active Substance: PROMETHAZINE HYDROCHLORIDE
  31. BICALUTAMIDE. [Concomitant]
     Active Substance: BICALUTAMIDE
  32. NITROFURANTOIN. [Concomitant]
     Active Substance: NITROFURANTOIN
  33. ENOXAPARIN [Concomitant]
     Active Substance: ENOXAPARIN
  34. PRILOSEC [Suspect]
     Active Substance: OMEPRAZOLE MAGNESIUM
     Indication: GASTROOESOPHAGEAL REFLUX DISEASE
     Route: 048
     Dates: start: 1989, end: 2018
  35. PROTONIX [Suspect]
     Active Substance: PANTOPRAZOLE SODIUM
     Indication: GASTROOESOPHAGEAL REFLUX DISEASE
     Dosage: GENERIC
     Route: 065
     Dates: start: 1995, end: 2019
  36. LAMOTRIGINE. [Concomitant]
     Active Substance: LAMOTRIGINE
     Indication: SEIZURE
     Dates: start: 2010
  37. VALSARTAN. [Concomitant]
     Active Substance: VALSARTAN
     Indication: CARDIAC DISORDER
     Dates: start: 1993
  38. ZANTAC [Concomitant]
     Active Substance: RANITIDINE HYDROCHLORIDE
     Dates: start: 1990
  39. GENTAMICIN. [Concomitant]
     Active Substance: GENTAMICIN
  40. NAPROXEN. [Concomitant]
     Active Substance: NAPROXEN
  41. CLOTRIMAZOLE. [Concomitant]
     Active Substance: CLOTRIMAZOLE
  42. METHOCARBAMOL. [Concomitant]
     Active Substance: METHOCARBAMOL
  43. PROTONIX [Suspect]
     Active Substance: PANTOPRAZOLE SODIUM
     Indication: GASTROOESOPHAGEAL REFLUX DISEASE
     Route: 065
     Dates: start: 198910, end: 201805
  44. ALLOPURINOL. [Concomitant]
     Active Substance: ALLOPURINOL
     Indication: NEPHROLITHIASIS
     Dates: start: 1973
  45. LIPITOR [Concomitant]
     Active Substance: ATORVASTATIN CALCIUM
     Indication: BLOOD CHOLESTEROL ABNORMAL
     Dates: start: 1995
  46. WARFARIN [Concomitant]
     Active Substance: WARFARIN
     Indication: CARDIAC VALVE DISEASE
     Dates: start: 1993
  47. ATENOLOL. [Concomitant]
     Active Substance: ATENOLOL
  48. CADUET [Concomitant]
     Active Substance: AMLODIPINE BESYLATE\ATORVASTATIN CALCIUM
  49. MOBIC [Concomitant]
     Active Substance: MELOXICAM
  50. PHENAZOPYRIDINE. [Concomitant]
     Active Substance: PHENAZOPYRIDINE
  51. COLCHICINE. [Concomitant]
     Active Substance: COLCHICINE
  52. TOPROL XL [Concomitant]
     Active Substance: METOPROLOL SUCCINATE
  53. PROTONIX [Suspect]
     Active Substance: PANTOPRAZOLE SODIUM
     Indication: DYSPEPSIA
     Route: 065
     Dates: start: 201504, end: 201512
  54. PROTONIX [Suspect]
     Active Substance: PANTOPRAZOLE SODIUM
     Indication: DYSPEPSIA
     Dosage: GENERIC
     Route: 065
     Dates: start: 1995, end: 2019
  55. MOTRIN [Concomitant]
     Active Substance: IBUPROFEN
     Indication: ARTHRITIS
     Dates: start: 1997
  56. POTASSIUM CHLORIDE. [Concomitant]
     Active Substance: POTASSIUM CHLORIDE
  57. BENZONATATE. [Concomitant]
     Active Substance: BENZONATATE
  58. METRONIDAZOLE. [Concomitant]
     Active Substance: METRONIDAZOLE
  59. CLINDAMYCIN. [Concomitant]
     Active Substance: CLINDAMYCIN
  60. POTASSIUM [Concomitant]
     Active Substance: POTASSIUM
     Dates: start: 1997
  61. MAGNESIUM [Concomitant]
     Active Substance: MAGNESIUM
     Dates: start: 1997
  62. FLOMAX [Concomitant]
     Active Substance: TAMSULOSIN HYDROCHLORIDE
  63. ISOSORBIDE MONONITRATE. [Concomitant]
     Active Substance: ISOSORBIDE MONONITRATE

REACTIONS (3)
  - Chronic kidney disease-mineral and bone disorder [Unknown]
  - Renal failure [Unknown]
  - Chronic kidney disease [Not Recovered/Not Resolved]

NARRATIVE: CASE EVENT DATE: 20120404
